FAERS Safety Report 18289041 (Version 4)
Quarter: 2020Q4

REPORT INFORMATION
  Report Type: Other
  Country: IT (occurrence: IT)
  Receive Date: 20200921
  Receipt Date: 20201005
  Transmission Date: 20210113
  Serious: Yes (Hospitalization)
  Sender: FDA-Public Use
  Company Number: IT-ROCHE-2652916

PATIENT
  Age: 8 Year
  Sex: Female
  Weight: 23 kg

DRUGS (8)
  1. OMEPRAZOLE. [Concomitant]
     Active Substance: OMEPRAZOLE
     Indication: GASTROOESOPHAGEAL REFLUX DISEASE
     Dosage: ROUTE- GASTROSTOMY,
     Dates: start: 2017
  2. RISDIPLAM. [Suspect]
     Active Substance: RISDIPLAM
     Indication: SPINAL MUSCULAR ATROPHY
     Dosage: ROUTE- GASTROSTOMY?ON 07/AUG/2020, RISDIPLAM HAS BEEN PROGRESSIVELY REINTRODUCED AT A DOSAGE OF 2 ML
     Route: 048
     Dates: start: 20200605, end: 20200730
  3. RISDIPLAM. [Suspect]
     Active Substance: RISDIPLAM
     Dosage: ROUTE- GASTROSTOMY?INCREASED BY 1 ML EVERY 48 HOURS
     Route: 048
     Dates: start: 20200807, end: 20200808
  4. RISDIPLAM. [Suspect]
     Active Substance: RISDIPLAM
     Dosage: ROUTE- GASTROSTOMY
     Route: 048
     Dates: start: 20200919, end: 20200923
  5. LANSOPRAZOLE. [Concomitant]
     Active Substance: LANSOPRAZOLE
     Indication: GASTROOESOPHAGEAL REFLUX DISEASE
     Dosage: TO PREVENT GASTROESOPHAGEAL REFLUX (CONSIDERING NON INVASIVE MECHANICAL VENTILATION).
  6. RISDIPLAM. [Suspect]
     Active Substance: RISDIPLAM
     Dosage: ROUTE- GASTROSTOMY?DRUG STOPPED
     Route: 048
     Dates: start: 20200811, end: 20200812
  7. RISDIPLAM. [Suspect]
     Active Substance: RISDIPLAM
     Dosage: ROUTE- GASTROSTOMY
     Route: 048
     Dates: start: 20200907
  8. RISDIPLAM. [Suspect]
     Active Substance: RISDIPLAM
     Dosage: ROUTE- GASTROSTOMY
     Route: 048
     Dates: start: 20200809, end: 20200810

REACTIONS (5)
  - Diarrhoea [Recovered/Resolved]
  - Nausea [Recovered/Resolved]
  - Nausea [Recovered/Resolved]
  - Vomiting [Recovered/Resolved]
  - Nausea [Recovered/Resolved]

NARRATIVE: CASE EVENT DATE: 20200608
